FAERS Safety Report 11885861 (Version 1)
Quarter: 2016Q1

REPORT INFORMATION
  Report Type: Report from Study
  Country: CO (occurrence: CO)
  Receive Date: 20160104
  Receipt Date: 20160104
  Transmission Date: 20160526
  Serious: Yes (Other)
  Sender: FDA-Public Use
  Company Number: CO-ABBVIE-15K-036-1530358-00

PATIENT
  Age: 72 Year
  Sex: Male
  Weight: 67 kg

DRUGS (1)
  1. HUMIRA [Suspect]
     Active Substance: ADALIMUMAB
     Indication: ANKYLOSING SPONDYLITIS
     Route: 058
     Dates: start: 20121127, end: 20151202

REACTIONS (3)
  - Ingrowing nail [Recovering/Resolving]
  - Influenza [Not Recovered/Not Resolved]
  - Onychomycosis [Recovering/Resolving]

NARRATIVE: CASE EVENT DATE: 20151203
